FAERS Safety Report 9456547 (Version 3)
Quarter: 2013Q4

REPORT INFORMATION
  Report Type: Spontaneous
  Country: US (occurrence: US)
  Receive Date: 20130813
  Receipt Date: 20131030
  Transmission Date: 20140711
  Serious: Yes (Other)
  Sender: FDA-Public Use
  Company Number: US-CELGENEUS-163-POMAL-13080932

PATIENT
  Age: 75 Year
  Sex: Male
  Weight: 94.84 kg

DRUGS (8)
  1. POMALYST [Suspect]
     Indication: PLASMA CELL MYELOMA
     Dosage: 4 MILLIGRAM
     Route: 048
     Dates: start: 20130319
  2. POMALYST [Suspect]
     Dosage: 3 MILLIGRAM
     Route: 048
     Dates: start: 20130805
  3. WARFARIN [Concomitant]
     Indication: DEEP VEIN THROMBOSIS
     Dosage: 25 MILLIGRAM
     Route: 048
  4. FERROUS SULFATE [Concomitant]
     Indication: IRON DEFICIENCY
     Dosage: 650 MILLIGRAM
     Route: 048
     Dates: start: 20130829
  5. ANUSOL [Concomitant]
     Indication: HAEMORRHOIDS
     Route: 065
  6. MIRALAX [Concomitant]
     Indication: HAEMORRHOIDS
     Route: 065
  7. ASPIRINE [Concomitant]
     Indication: DEEP VEIN THROMBOSIS
     Route: 065
  8. STEROIDS [Concomitant]
     Indication: PRODUCT USED FOR UNKNOWN INDICATION
     Route: 065

REACTIONS (4)
  - Haemorrhoidal haemorrhage [Recovering/Resolving]
  - Leukopenia [Recovering/Resolving]
  - Neutropenia [Recovering/Resolving]
  - Fatigue [Recovering/Resolving]
